FAERS Safety Report 7887341 (Version 2)
Quarter: 2013Q2

REPORT INFORMATION
  Report Type: Spontaneous
  Country: US (occurrence: US)
  Receive Date: 20110406
  Receipt Date: 20130614
  Transmission Date: 20140414
  Serious: Yes (Hospitalization, Other)
  Sender: FDA-Public Use
  Company Number: US-BAYER-2011-028508

PATIENT
  Age: 28 Year
  Sex: Female

DRUGS (8)
  1. YAZ [Suspect]
     Dosage: UNK
     Dates: start: 200001
  2. YASMIN [Suspect]
     Dosage: UNK
     Dates: start: 200001
  3. ROLAIDS [CALCIUM CARBONATE,MAGNESIUM HYDROXIDE] [Concomitant]
  4. ZANTAC [Concomitant]
  5. PERCOCET [Concomitant]
  6. ZOSYN [Concomitant]
  7. TORADOL [Concomitant]
  8. ZOFRAN [Concomitant]

REACTIONS (8)
  - Thrombosis [None]
  - Cholecystectomy [None]
  - Injury [None]
  - Anxiety [None]
  - Anhedonia [None]
  - Emotional distress [None]
  - Pain [None]
  - Cholecystitis acute [None]
